FAERS Safety Report 6740579-8 (Version None)
Quarter: 2010Q2

REPORT INFORMATION
  Report Type: 
  Country: None (occurrence: None)
  Receive Date: 20100525
  Receipt Date: 20100514
  Transmission Date: 20101027
  Serious: Yes (Hospitalization)
  Sender: FDA-Public Use
  Company Number: US-BAXTER-2010BH011997

PATIENT
  Age: 75 Year
  Sex: Male

DRUGS (6)
  1. DIANEAL [Suspect]
     Indication: PERITONEAL DIALYSIS
     Route: 033
     Dates: start: 20100501
  2. DIANEAL [Suspect]
     Indication: RENAL FAILURE CHRONIC
     Route: 033
     Dates: start: 20100501
  3. DIANEAL [Suspect]
     Route: 033
     Dates: end: 20100401
  4. DIANEAL [Suspect]
     Route: 033
     Dates: end: 20100401
  5. DIANEAL [Suspect]
     Indication: PERITONEAL DIALYSIS
     Route: 033
     Dates: start: 20100401, end: 20100501
  6. ANTI-DIABETICS [Concomitant]
     Indication: DIABETES MELLITUS
     Route: 065

REACTIONS (7)
  - ABDOMINAL DISCOMFORT [None]
  - ABDOMINAL DISTENSION [None]
  - DYSPNOEA [None]
  - FLUID RETENTION [None]
  - NAUSEA [None]
  - THROMBOSIS [None]
  - VOMITING [None]
